FAERS Safety Report 7183332-6 (Version None)
Quarter: 2010Q4

REPORT INFORMATION
  Report Type: 
  Country: None (occurrence: None)
  Receive Date: 20101220
  Receipt Date: 20101220
  Transmission Date: 20110411
  Serious: Yes (Hospitalization)
  Sender: FDA-Public Use
  Company Number: None

PATIENT
  Age: 77 Year
  Sex: Male
  Weight: 77.7 kg

DRUGS (10)
  1. GLYBURIDE [Suspect]
     Indication: HYPERGLYCAEMIA
     Dosage: 10MG AM 5  MG PM BID PO CHRONIC
     Route: 048
  2. DILTIAZEM [Concomitant]
  3. DIOVAN [Concomitant]
  4. CRESTOR [Concomitant]
  5. LUMIGAN [Concomitant]
  6. GLYBURIDE [Concomitant]
  7. DIAZEPAM [Concomitant]
  8. CHLORPHENIRAMINE [Concomitant]
  9. COUMADIN [Concomitant]
  10. COSOPT [Concomitant]

REACTIONS (6)
  - DRUG CLEARANCE DECREASED [None]
  - DRUG LEVEL ABOVE THERAPEUTIC [None]
  - HYPOGLYCAEMIA [None]
  - INTERNATIONAL NORMALISED RATIO INCREASED [None]
  - LUNG NEOPLASM MALIGNANT [None]
  - RENAL FAILURE ACUTE [None]
